FAERS Safety Report 7557662-X (Version None)
Quarter: 2011Q2

REPORT INFORMATION
  Report Type: 
  Country: None (occurrence: None)
  Receive Date: 20110620
  Receipt Date: 20110616
  Transmission Date: 20111010
  Serious: Yes (Hospitalization)
  Sender: FDA-Public Use
  Company Number: GR-ABBOTT-11P-066-0732838-00

PATIENT
  Age: 64 Year
  Sex: Female

DRUGS (13)
  1. ENTACT [Concomitant]
     Indication: DEPRESSION
     Route: 048
     Dates: start: 20100706
  2. SALOSPIR [Concomitant]
     Indication: CORONARY ARTERY DISEASE
     Route: 048
     Dates: start: 20100706
  3. ISCOVER [Concomitant]
     Indication: CORONARY ARTERY DISEASE
     Route: 048
     Dates: start: 20100706
  4. MIRCERA [Concomitant]
     Indication: ANAEMIA
     Route: 058
     Dates: start: 20110429
  5. DILTIAZEM HCL [Concomitant]
     Indication: HYPERTENSION
  6. CRESTOR [Concomitant]
     Indication: HYPERCHOLESTEROLAEMIA
     Route: 048
     Dates: start: 20110204
  7. SINTROM [Concomitant]
     Indication: ATRIAL FIBRILLATION
     Route: 048
     Dates: start: 20100706
  8. ZEMPLAR [Suspect]
     Indication: PRODUCT USED FOR UNKNOWN INDICATION
  9. IMDUR [Concomitant]
     Indication: CORONARY ARTERY DISEASE
     Route: 048
     Dates: start: 20100706
  10. CARVEDILOL [Concomitant]
     Indication: CORONARY ARTERY DISEASE
     Route: 048
     Dates: start: 20100706
  11. ZYLAPOUR [Concomitant]
     Indication: HYPERURICAEMIA
     Route: 048
     Dates: start: 20110204
  12. DILTIAZEM HCL [Concomitant]
     Indication: CORONARY ARTERY DISEASE
     Route: 048
     Dates: start: 20100706
  13. OMACOR [Concomitant]
     Indication: HYPERTRIGLYCERIDAEMIA
     Route: 048
     Dates: start: 20110205

REACTIONS (1)
  - ATRIAL FIBRILLATION [None]
